FAERS Safety Report 6361654-6 (Version None)
Quarter: 2009Q3

REPORT INFORMATION
  Report Type: 
  Country: None (occurrence: None)
  Receive Date: 20090918
  Receipt Date: 20090907
  Transmission Date: 20100115
  Serious: Yes (Other)
  Sender: FDA-Public Use
  Company Number: GB-PFIZER INC-2009264748

PATIENT

DRUGS (3)
  1. PHENYTOIN AND PHENYTOIN SODIUM [Suspect]
     Indication: METASTASES TO CENTRAL NERVOUS SYSTEM
     Dosage: 300 MG, UNK
     Route: 048
     Dates: start: 20080201, end: 20090722
  2. PHENYTOIN AND PHENYTOIN SODIUM [Interacting]
     Indication: CONVULSION
  3. LAPATINIB [Interacting]
     Indication: BREAST CANCER
     Dosage: 1250 MG, UNK
     Route: 048
     Dates: start: 20090612

REACTIONS (3)
  - ANTICONVULSANT DRUG LEVEL INCREASED [None]
  - DRUG INTERACTION [None]
  - DRUG TOXICITY [None]
